FAERS Safety Report 9248477 (Version 1)
Quarter: 2013Q1

REPORT INFORMATION
  Report Type: Spontaneous
  Country: US (occurrence: None)
  Receive Date: 20130305
  Receipt Date: 20130305
  Transmission Date: 20140127
  Serious: Yes (Hospitalization, Other)
  Sender: FDA-Public Use
  Company Number: 163-21880-12053685

PATIENT
  Age: 81 Year
  Sex: Male

DRUGS (14)
  1. REVLIMID [Suspect]
     Indication: PLASMA CELL MYELOMA
     Dosage: 25 MG, 1 IN 1 D
     Route: 048
     Dates: start: 201112, end: 2012
  2. PRAVASTATIN SODIUM (PRAVASTATIN SODIUM) [Concomitant]
  3. LEVOTHYROXINE SODIUM (LEVOTHYROXINE SODIUM) (TABLETS) [Concomitant]
  4. MECLIZINE HCL (MECLOZINE HYDROCHLORIDE) (TABLETS) [Concomitant]
  5. ZOMETA (ZOLEDRONIC ACID) SOLUTION [Concomitant]
  6. PROCHLORPERAZINE MALEATE (PROCHLORPERAZINE MALEATE) (TABLETS) [Concomitant]
  7. TRAZODONE HCL (TRAZODONE HYDROCHLORIDE) (50 MILLIGRAM, TABLETS) [Concomitant]
  8. ASPIRIN (ACETYLSALICYLIC ACID) (TABLETS) [Concomitant]
  9. METOPROLOL SUCCINATE (METOPROLOL SUCCINATE) (25 MILLIGRAM, TABLETS) [Concomitant]
  10. DEXAMETHASONE (DEXAMETHASONE) (4 MILLIGRAM, TABLETS) [Concomitant]
  11. HYDROCODONE-ACETAMINOPHEN (VICODIN) (TABLETS) [Concomitant]
  12. HYDRALAZINE HCI (HYDRALAZINE HYDROCHLORIDE) (TABLETS) [Concomitant]
  13. IMDUR (ISOSORBIDE MONONITRATE) (TABLETS) [Concomitant]
  14. PLAVIX (CLOPIDOGREL SULFATE) (UNKNOWN) [Concomitant]

REACTIONS (2)
  - Pancytopenia [None]
  - Cardiac failure congestive [None]
